FAERS Safety Report 7305961-9 (Version None)
Quarter: 2011Q1

REPORT INFORMATION
  Report Type: 
  Country: None (occurrence: None)
  Receive Date: 20110210
  Receipt Date: 20110203
  Transmission Date: 20110831
  Serious: Yes (Other)
  Sender: FDA-Public Use
  Company Number: FABR-1000697

PATIENT
  Age: 17 Year
  Sex: Male
  Weight: 55 kg

DRUGS (5)
  1. FABRAZYME [Suspect]
     Indication: FABRY'S DISEASE
     Dosage: 0.5, 70, 0.2 MG/KG, ONCE, INTRAVENOUS
     Route: 042
     Dates: start: 20090421, end: 20090421
  2. FABRAZYME [Suspect]
     Indication: FABRY'S DISEASE
     Dosage: 0.5, 70, 0.2 MG/KG, ONCE, INTRAVENOUS
     Route: 042
     Dates: start: 20090224, end: 20090224
  3. FABRAZYME [Suspect]
     Indication: FABRY'S DISEASE
     Dosage: 0.5, 70, 0.2 MG/KG, ONCE, INTRAVENOUS
     Route: 042
     Dates: start: 20090507, end: 20090507
  4. FABRAZYME [Suspect]
     Indication: FABRY'S DISEASE
     Dosage: 0.5, 70, 0.2 MG/KG, ONCE, INTRAVENOUS
     Route: 042
     Dates: start: 20090306, end: 20090306
  5. REPLAGAL (AGALSIDASE ALFA) [Concomitant]

REACTIONS (7)
  - BODY TEMPERATURE INCREASED [None]
  - INFUSION RELATED REACTION [None]
  - EOSINOPHIL PERCENTAGE INCREASED [None]
  - ECZEMA [None]
  - FEELING HOT [None]
  - STAPHYLOCOCCAL INFECTION [None]
  - STREPTOCOCCAL INFECTION [None]
